FAERS Safety Report 22963658 (Version 3)
Quarter: 2023Q4

REPORT INFORMATION
  Report Type: Spontaneous
  Country: JP (occurrence: JP)
  Receive Date: 20230921
  Receipt Date: 20231017
  Transmission Date: 20240109
  Serious: Yes (Hospitalization)
  Sender: FDA-Public Use
  Company Number: JP-ELI_LILLY_AND_COMPANY-JP202309006756

PATIENT
  Age: 79 Year
  Sex: Female

DRUGS (29)
  1. MOUNJARO [Suspect]
     Active Substance: TIRZEPATIDE
     Indication: Type 2 diabetes mellitus
     Dosage: 2.5 MG, UNKNOWN
     Route: 058
     Dates: start: 20230602, end: 20230629
  2. MOUNJARO [Suspect]
     Active Substance: TIRZEPATIDE
     Dosage: 5 MG, UNKNOWN
     Route: 058
     Dates: start: 20230630
  3. DAPAGLIFLOZIN [Suspect]
     Active Substance: DAPAGLIFLOZIN
     Indication: Type 2 diabetes mellitus
     Dosage: 25 MG, UNKNOWN
     Route: 048
     Dates: start: 20230602, end: 20230715
  4. METFORMIN HYDROCHLORIDE [Suspect]
     Active Substance: METFORMIN HYDROCHLORIDE
     Indication: Type 2 diabetes mellitus
     Dosage: 1000 MG, DAILY
     Route: 048
     Dates: start: 20230602, end: 20230715
  5. INSULIN LISPRO [Concomitant]
     Active Substance: INSULIN LISPRO
     Indication: Type 2 diabetes mellitus
     Dosage: 3 INTERNATIONAL UNIT, TID
     Dates: start: 20230701, end: 20230701
  6. INSULIN LISPRO [Concomitant]
     Active Substance: INSULIN LISPRO
     Dosage: 4 INTERNATIONAL UNIT, TID
     Dates: start: 20230702, end: 20230704
  7. INSULIN LISPRO [Concomitant]
     Active Substance: INSULIN LISPRO
     Dosage: 7 INTERNATIONAL UNIT, DAILY
     Dates: start: 20230705, end: 20230705
  8. INSULIN LISPRO [Concomitant]
     Active Substance: INSULIN LISPRO
     Dosage: 5 INTERNATIONAL UNIT, DAILY
     Dates: start: 20230706, end: 20230706
  9. INSULIN LISPRO [Concomitant]
     Active Substance: INSULIN LISPRO
     Dosage: 6 INTERNATIONAL UNIT, DAILY
     Dates: start: 20230707, end: 20230707
  10. INSULIN LISPRO [Concomitant]
     Active Substance: INSULIN LISPRO
     Dosage: 10 INTERNATIONAL UNIT, DAILY
     Dates: start: 20230708, end: 20230708
  11. INSULIN LISPRO [Concomitant]
     Active Substance: INSULIN LISPRO
     Dosage: 11 INTERNATIONAL UNIT, DAILY
     Dates: start: 20230709, end: 20230709
  12. INSULIN LISPRO [Concomitant]
     Active Substance: INSULIN LISPRO
     Dosage: 6 INTERNATIONAL UNIT, DAILY
     Dates: start: 20230710, end: 20230710
  13. INSULIN LISPRO [Concomitant]
     Active Substance: INSULIN LISPRO
     Dosage: 2 INTERNATIONAL UNIT, DAILY
     Dates: start: 20230712, end: 20230712
  14. INSULIN LISPRO [Concomitant]
     Active Substance: INSULIN LISPRO
     Dosage: 4 INTERNATIONAL UNIT, DAILY
     Dates: start: 20230713, end: 20230713
  15. INSULIN LISPRO [Concomitant]
     Active Substance: INSULIN LISPRO
     Dosage: 2 INTERNATIONAL UNIT, DAILY
     Dates: start: 20230714, end: 20230714
  16. INSULIN LISPRO [Concomitant]
     Active Substance: INSULIN LISPRO
     Dosage: 4 INTERNATIONAL UNIT, DAILY
     Dates: start: 20230716, end: 20230716
  17. INSULIN LISPRO [Concomitant]
     Active Substance: INSULIN LISPRO
     Dosage: 3 INTERNATIONAL UNIT, DAILY
     Dates: start: 20230717, end: 20230717
  18. INSULIN LISPRO [Concomitant]
     Active Substance: INSULIN LISPRO
     Dosage: 4 INTERNATIONAL UNIT, DAILY
     Dates: start: 20230718, end: 20230718
  19. INSULIN LISPRO [Concomitant]
     Active Substance: INSULIN LISPRO
     Dosage: 8 INTERNATIONAL UNIT, DAILY
     Dates: start: 20230719, end: 20230719
  20. INSULIN LISPRO [Concomitant]
     Active Substance: INSULIN LISPRO
     Dosage: 2 INTERNATIONAL UNIT, TID
     Dates: start: 20230720, end: 20230721
  21. INSULIN LISPRO [Concomitant]
     Active Substance: INSULIN LISPRO
     Dosage: 2 INTERNATIONAL UNIT, DAILY
     Dates: start: 20230722, end: 20230722
  22. INSULIN LISPRO [Concomitant]
     Active Substance: INSULIN LISPRO
     Dosage: 2 INTERNATIONAL UNIT, DAILY
     Dates: start: 20230723, end: 20230724
  23. INSULIN LISPRO [Concomitant]
     Active Substance: INSULIN LISPRO
     Dosage: 2 INTERNATIONAL UNIT, TID
     Dates: start: 20230725, end: 20230727
  24. INSULIN GLARGINE [Concomitant]
     Active Substance: INSULIN GLARGINE
     Indication: Type 2 diabetes mellitus
     Dosage: 5 INTERNATIONAL UNIT, DAILY
     Dates: start: 20230701, end: 20230701
  25. INSULIN GLARGINE [Concomitant]
     Active Substance: INSULIN GLARGINE
     Dosage: 6 INTERNATIONAL UNIT, DAILY
     Dates: start: 20230702, end: 20230702
  26. INSULIN GLARGINE [Concomitant]
     Active Substance: INSULIN GLARGINE
     Dosage: 4 INTERNATIONAL UNIT, DAILY
     Dates: start: 20230703, end: 20230703
  27. INSULIN GLARGINE [Concomitant]
     Active Substance: INSULIN GLARGINE
     Dosage: 6 INTERNATIONAL UNIT, DAILY
     Dates: start: 20230704, end: 20230709
  28. INSULIN GLARGINE [Concomitant]
     Active Substance: INSULIN GLARGINE
     Dosage: 3 INTERNATIONAL UNIT, DAILY
     Dates: start: 20230710, end: 20230714
  29. INSULIN GLARGINE [Concomitant]
     Active Substance: INSULIN GLARGINE
     Dosage: 3 INTERNATIONAL UNIT, DAILY
     Dates: start: 20230716, end: 20230727

REACTIONS (1)
  - Ketoacidosis [Recovered/Resolved]

NARRATIVE: CASE EVENT DATE: 20230715
